FAERS Safety Report 8596556-8 (Version None)
Quarter: 2012Q3

REPORT INFORMATION
  Report Type: 
  Country: None (occurrence: None)
  Receive Date: 20120815
  Receipt Date: 20120807
  Transmission Date: 20120928
  Serious: No
  Sender: FDA-Public Use
  Company Number: US-ASTRAZENECA-2012SE55789

PATIENT
  Age: 33 Year
  Sex: Female
  Weight: 90.7 kg

DRUGS (4)
  1. ATENOLOL [Concomitant]
     Indication: BLOOD PRESSURE ABNORMAL
  2. ATENOLOL [Concomitant]
     Indication: CHEST DISCOMFORT
  3. SYNTHROID [Concomitant]
     Indication: THYROID DISORDER
  4. NEXIUM [Suspect]
     Indication: GASTROOESOPHAGEAL REFLUX DISEASE
     Route: 048
     Dates: start: 20080101, end: 20100101

REACTIONS (6)
  - GASTROOESOPHAGEAL REFLUX DISEASE [None]
  - DYSPEPSIA [None]
  - CHEST PAIN [None]
  - DISEASE RECURRENCE [None]
  - INTENTIONAL DRUG MISUSE [None]
  - NAUSEA [None]
